FAERS Safety Report 25068196 (Version 1)
Quarter: 2025Q1

REPORT INFORMATION
  Report Type: Spontaneous
  Country: US (occurrence: None)
  Receive Date: 20250312
  Receipt Date: 20250312
  Transmission Date: 20250409
  Serious: Yes (Hospitalization)
  Sender: FDA-CTU
  Company Number: None

PATIENT
  Age: 75 Year
  Sex: Male
  Weight: 82.6 kg

DRUGS (4)
  1. FLUOROURACIL [Suspect]
     Active Substance: FLUOROURACIL
  2. IRINOTECAN [Suspect]
     Active Substance: IRINOTECAN
  3. LEUCOVORIN CALCIUM [Suspect]
     Active Substance: LEUCOVORIN CALCIUM
  4. ELOXATIN [Suspect]
     Active Substance: OXALIPLATIN

REACTIONS (1)
  - Subcutaneous emphysema [None]

NARRATIVE: CASE EVENT DATE: 20250309
